FAERS Safety Report 19628259 (Version 3)
Quarter: 2021Q3

REPORT INFORMATION
  Report Type: Report from Study
  Country: BE (occurrence: BE)
  Receive Date: 20210728
  Receipt Date: 20210908
  Transmission Date: 20211014
  Serious: Yes (Hospitalization, Other)
  Sender: FDA-Public Use
  Company Number: BE-BRISTOL-MYERS SQUIBB COMPANY-BMS-2021-068029

PATIENT
  Age: 45 Year
  Sex: Female
  Weight: 49.5 kg

DRUGS (9)
  1. D?CURE [Concomitant]
     Active Substance: CHOLECALCIFEROL
     Indication: VITAMIN D DEFICIENCY
     Dosage: 25000 INTERNATIONAL UNIT, QWK
     Route: 065
     Dates: start: 20210604
  2. CISPLATIN. [Suspect]
     Active Substance: CISPLATIN
     Dosage: 100 MILLIGRAM/SQ. METER
     Route: 065
     Dates: start: 20210503, end: 20210616
  3. NIVOLUMAB [Suspect]
     Active Substance: NIVOLUMAB
     Dosage: DAYS 1?22
     Route: 065
     Dates: start: 20210503, end: 20210616
  4. DEPAKINE [VALPROIC ACID] [Concomitant]
     Active Substance: VALPROIC ACID
     Indication: SEIZURE PROPHYLAXIS
     Dosage: 500 MILLIGRAM, TID
     Route: 048
     Dates: start: 2002
  5. NIVOLUMAB [Suspect]
     Active Substance: NIVOLUMAB
     Dosage: 360 MILLIGRAM
     Route: 065
     Dates: start: 20210503, end: 20210614
  6. ALGOSTASE [Concomitant]
     Indication: PRODUCT USED FOR UNKNOWN INDICATION
     Route: 065
  7. NIVOLUMAB [Suspect]
     Active Substance: NIVOLUMAB
     Indication: SQUAMOUS CELL CARCINOMA OF HEAD AND NECK
     Dosage: 240 MILLIGRAM
     Route: 065
     Dates: start: 20210422
  8. CISPLATIN. [Suspect]
     Active Substance: CISPLATIN
     Indication: SQUAMOUS CELL CARCINOMA OF HEAD AND NECK
     Dosage: 158 MILLIGRAM
     Route: 065
     Dates: start: 20210503
  9. CISPLATIN. [Suspect]
     Active Substance: CISPLATIN
     Dosage: 157 MILLIGRAM
     Route: 065
     Dates: start: 20210525

REACTIONS (3)
  - Anaemia macrocytic [Unknown]
  - Hypomagnesaemia [Recovered/Resolved]
  - Escherichia urinary tract infection [Unknown]
